FAERS Safety Report 17632774 (Version 2)
Quarter: 2020Q2

REPORT INFORMATION
  Report Type: Spontaneous
  Country: US (occurrence: US)
  Receive Date: 20200406
  Receipt Date: 20200426
  Transmission Date: 20200713
  Serious: No
  Sender: FDA-Public Use
  Company Number: US-ASTRAZENECA-2020SE38251

PATIENT
  Sex: Male

DRUGS (1)
  1. SYMBICORT [Suspect]
     Active Substance: BUDESONIDE\FORMOTEROL FUMARATE DIHYDRATE
     Dosage: 160/4.5 MCG, 2 PUFFS TWICE A DAY, TWO TIMES A DAY
     Route: 055

REACTIONS (6)
  - Device issue [Unknown]
  - Drug ineffective [Recovered/Resolved]
  - Intentional device misuse [Recovered/Resolved]
  - Incorrect dose administered by device [Recovered/Resolved]
  - Malaise [Recovered/Resolved]
  - Dyspnoea [Recovered/Resolved]
